FAERS Safety Report 11335243 (Version 1)
Quarter: 2015Q3

REPORT INFORMATION
  Report Type: Spontaneous
  Country: US (occurrence: US)
  Receive Date: 20150804
  Receipt Date: 20150804
  Transmission Date: 20151125
  Serious: No
  Sender: FDA-Public Use
  Company Number: US-BAYER-2015-377274

PATIENT
  Age: 58 Year
  Sex: Male

DRUGS (1)
  1. CIPRO [Suspect]
     Active Substance: CIPROFLOXACIN HYDROCHLORIDE
     Indication: RESPIRATORY TRACT CONGESTION
     Dosage: UNK

REACTIONS (1)
  - Incorrect route of drug administration [None]
